FAERS Safety Report 12980140 (Version 1)
Quarter: 2016Q4

REPORT INFORMATION
  Report Type: Report from Study
  Country: US (occurrence: US)
  Receive Date: 20161128
  Receipt Date: 20161128
  Transmission Date: 20170207
  Serious: Yes (Hospitalization, Other)
  Sender: FDA-Public Use
  Company Number: US-PFIZER INC-2016541279

PATIENT
  Age: 67 Year
  Sex: Male

DRUGS (1)
  1. SUTENT [Suspect]
     Active Substance: SUNITINIB MALATE
     Indication: GASTROINTESTINAL NEOPLASM
     Dosage: 37.5 MG, DAILY
     Route: 048
     Dates: start: 20140731, end: 20161109

REACTIONS (2)
  - Kidney infection [Unknown]
  - Protein urine [Unknown]

NARRATIVE: CASE EVENT DATE: 201611
